FAERS Safety Report 19924244 (Version 14)
Quarter: 2023Q2

REPORT INFORMATION
  Report Type: Spontaneous
  Country: US (occurrence: US)
  Receive Date: 20211006
  Receipt Date: 20230518
  Transmission Date: 20230721
  Serious: Yes (Other)
  Sender: FDA-Public Use
  Company Number: US-ELI_LILLY_AND_COMPANY-US202101002803

PATIENT
  Age: 62 Year
  Sex: Female

DRUGS (19)
  1. ADCIRCA [Suspect]
     Active Substance: TADALAFIL
     Indication: Pulmonary arterial hypertension
     Dosage: 40 MG, DAILY
     Route: 048
     Dates: start: 20210105
  2. ADCIRCA [Suspect]
     Active Substance: TADALAFIL
     Dosage: 20 MG, DAILY
     Route: 048
     Dates: start: 202103
  3. ORENITRAM [Suspect]
     Active Substance: TREPROSTINIL
     Indication: Pulmonary arterial hypertension
     Dosage: 1.25 MG, TID
     Route: 048
     Dates: start: 20210723, end: 202111
  4. ORENITRAM [Suspect]
     Active Substance: TREPROSTINIL
     Dosage: 1 MG, TID
     Route: 048
     Dates: start: 202111
  5. REMODULIN [Suspect]
     Active Substance: TREPROSTINIL
     Indication: Pulmonary arterial hypertension
     Dosage: 18.8 NG, (NG/KG/MIN)
     Route: 058
  6. REMODULIN [Suspect]
     Active Substance: TREPROSTINIL
     Dosage: 60 NG, OTHER (60 NG PER MINUTE)
     Route: 058
     Dates: start: 202111
  7. REMODULIN [Suspect]
     Active Substance: TREPROSTINIL
     Dosage: 24.8 NG/KG/MIN, 0.016 ML/HR
     Route: 058
     Dates: start: 20211116
  8. REMODULIN [Suspect]
     Active Substance: TREPROSTINIL
     Dosage: 33.8 NG/KG/MIN, DAILY
     Route: 058
     Dates: start: 20211116
  9. REMODULIN [Suspect]
     Active Substance: TREPROSTINIL
     Dosage: 21.8 NG/KG/MIN, DAILY
     Route: 058
     Dates: start: 20211117
  10. REMODULIN [Suspect]
     Active Substance: TREPROSTINIL
     Dosage: 33.8 NG/KG/MIN, DAILY
     Route: 058
     Dates: start: 20211124
  11. REMODULIN [Suspect]
     Active Substance: TREPROSTINIL
     Dosage: UNK UNK, UNKNOWN (DOSE INCREASED)
     Route: 058
     Dates: start: 20220713
  12. REMODULIN [Suspect]
     Active Substance: TREPROSTINIL
     Dosage: 33.8 NG/KG/MIN, OTHER (CONTINUOUS) (DOSE DECREASED)
     Route: 058
     Dates: start: 20220719
  13. REMODULIN [Suspect]
     Active Substance: TREPROSTINIL
     Dosage: 55.90NG/KG/MIN, DAILY
     Route: 058
  14. REMODULIN [Suspect]
     Active Substance: TREPROSTINIL
     Dosage: (56.66 NG/KG/MIN) 0.034ML/HR
     Route: 058
  15. LETAIRIS [Suspect]
     Active Substance: AMBRISENTAN
     Indication: Product used for unknown indication
     Dosage: UNK UNK, UNKNOWN
     Route: 065
  16. BARDOXOLONE [Suspect]
     Active Substance: BARDOXOLONE
     Indication: Product used for unknown indication
     Dosage: UNK UNK, UNKNOWN
     Route: 065
     Dates: start: 2015, end: 2022
  17. BARDOXOLONE [Suspect]
     Active Substance: BARDOXOLONE
     Dosage: UNK UNK, UNKNOWN
     Route: 065
     Dates: start: 202208
  18. AMBRISENTAN [Suspect]
     Active Substance: AMBRISENTAN
     Indication: Pulmonary arterial hypertension
     Dosage: 10 MG, DAILY
     Route: 065
     Dates: start: 202108
  19. LOPERAMIDE [Concomitant]
     Active Substance: LOPERAMIDE
     Indication: Diarrhoea
     Dosage: UNK UNK, DAILY
     Route: 065

REACTIONS (31)
  - Blood iron decreased [Unknown]
  - Cardiomegaly [Unknown]
  - Pain in jaw [Not Recovered/Not Resolved]
  - Face injury [Unknown]
  - Joint injury [Unknown]
  - Fall [Unknown]
  - Wound secretion [Unknown]
  - Concussion [Unknown]
  - Feeling abnormal [Unknown]
  - Weight decreased [Not Recovered/Not Resolved]
  - Respiration abnormal [Unknown]
  - Sinus disorder [Unknown]
  - Injection site pain [Unknown]
  - Cough [Recovered/Resolved]
  - Cough [Unknown]
  - Visual impairment [Unknown]
  - Diarrhoea [Not Recovered/Not Resolved]
  - Pruritus [Unknown]
  - Dyspnoea [Recovering/Resolving]
  - Headache [Unknown]
  - Fatigue [Unknown]
  - Abdominal pain [Unknown]
  - Vomiting [Recovered/Resolved]
  - Nausea [Not Recovered/Not Resolved]
  - Headache [Recovered/Resolved]
  - Rash [Unknown]
  - Abdominal pain upper [Unknown]
  - Pain in extremity [Unknown]
  - Palpitations [Unknown]
  - Back pain [Unknown]
  - Hypersensitivity [Unknown]

NARRATIVE: CASE EVENT DATE: 20211224
